FAERS Safety Report 21580058 (Version 1)
Quarter: 2022Q4

REPORT INFORMATION
  Report Type: Spontaneous
  Country: US (occurrence: None)
  Receive Date: 20221110
  Receipt Date: 20221110
  Transmission Date: 20230113
  Serious: No
  Sender: FDA-Public Use
  Company Number: None

PATIENT
  Age: 2 Year
  Sex: Male

DRUGS (1)
  1. TUBERCULIN NOS [Suspect]
     Active Substance: TUBERCULIN PURIFIED PROTEIN DERIVATIVE
     Route: 023

REACTIONS (4)
  - Pruritus [None]
  - Papule [None]
  - Injection site reaction [None]
  - Blister [None]

NARRATIVE: CASE EVENT DATE: 20221010
